FAERS Safety Report 20375457 (Version 1)
Quarter: 2022Q1

REPORT INFORMATION
  Report Type: Spontaneous
  Country: MX (occurrence: MX)
  Receive Date: 20220125
  Receipt Date: 20220125
  Transmission Date: 20220424
  Serious: Yes (Other)
  Sender: FDA-Public Use
  Company Number: MX-SA-2022SA014530

PATIENT

DRUGS (2)
  1. ENOXAPARIN SODIUM [Interacting]
     Active Substance: ENOXAPARIN SODIUM
     Dosage: UNK
  2. LOSARTAN POTASSIUM [Interacting]
     Active Substance: LOSARTAN POTASSIUM
     Dosage: UNK

REACTIONS (2)
  - Hyperkalaemia [Unknown]
  - Drug interaction [Unknown]
